FAERS Safety Report 5960837-4 (Version None)
Quarter: 2008Q4

REPORT INFORMATION
  Report Type: 
  Country: None (occurrence: None)
  Receive Date: 20081112
  Receipt Date: 20080530
  Transmission Date: 20090506
  Serious: Yes (Hospitalization)
  Sender: FDA-Public Use
  Company Number: 2008S1000194

PATIENT
  Age: 64 Year
  Sex: Female
  Weight: 56.6 kg

DRUGS (5)
  1. CUBICIN [Suspect]
     Indication: ABDOMINAL ABSCESS
     Dosage: 6.18 MG/KG; Q24H; IV
     Route: 042
     Dates: start: 20080520, end: 20080529
  2. MOXIFLOXACIN HCL [Concomitant]
  3. LEXAPRO [Concomitant]
  4. ZOFRAN [Concomitant]
  5. AMBIEN [Concomitant]

REACTIONS (2)
  - BLOOD CREATINE PHOSPHOKINASE INCREASED [None]
  - MYALGIA [None]
